FAERS Safety Report 6229872-5 (Version None)
Quarter: 2009Q2

REPORT INFORMATION
  Report Type: 
  Country: None (occurrence: None)
  Receive Date: 20090615
  Receipt Date: 20090602
  Transmission Date: 20091009
  Serious: Yes (Life-Threatening, Hospitalization)
  Sender: FDA-Public Use
  Company Number: DE-ELI_LILLY_AND_COMPANY-DE200906000435

PATIENT
  Sex: Male

DRUGS (5)
  1. CYMBALTA [Suspect]
     Dosage: 30 MG, UNKNOWN
     Route: 048
  2. DOMINAL FORTE [Concomitant]
     Dosage: 80 D/F, UNKNOWN
     Route: 065
  3. MIRTAZAPIN RATIOPHARM [Concomitant]
     Dosage: 15 D/F, UNKNOWN
     Route: 065
  4. SEROQUEL [Concomitant]
     Dosage: 25 D/F, UNKNOWN
     Route: 065
  5. ZOPICLODURA [Concomitant]
     Dosage: 7.5 D/F, UNKNOWN
     Route: 065

REACTIONS (7)
  - ACIDOSIS [None]
  - BRAIN OEDEMA [None]
  - COMA [None]
  - HYPERCAPNIA [None]
  - HYPOVENTILATION [None]
  - SUICIDE ATTEMPT [None]
  - TACHYCARDIA [None]
